FAERS Safety Report 25236361 (Version 4)
Quarter: 2025Q4

REPORT INFORMATION
  Report Type: Spontaneous
  Country: EU (occurrence: EU)
  Receive Date: 20250424
  Receipt Date: 20251125
  Transmission Date: 20260117
  Serious: Yes (Life-Threatening, Hospitalization)
  Sender: MYLAN
  Company Number: EU-PFIZER INC-2009288047

PATIENT
  Age: 62 Year
  Sex: Male

DRUGS (56)
  1. LANSOPRAZOLE [Suspect]
     Active Substance: LANSOPRAZOLE
     Indication: Gastric ulcer
     Dosage: 30 MILLIGRAM, BID (60 MG, QD) (120 MG , QD)
     Dates: start: 20080507, end: 20080523
  2. LANSOPRAZOLE [Suspect]
     Active Substance: LANSOPRAZOLE
     Dosage: 30 MILLIGRAM, BID (60 MG, QD) (120 MG , QD)
     Route: 048
     Dates: start: 20080507, end: 20080523
  3. LANSOPRAZOLE [Suspect]
     Active Substance: LANSOPRAZOLE
     Dosage: 30 MILLIGRAM, BID (60 MG, QD) (120 MG , QD)
     Route: 048
     Dates: start: 20080507, end: 20080523
  4. LANSOPRAZOLE [Suspect]
     Active Substance: LANSOPRAZOLE
     Dosage: 30 MILLIGRAM, BID (60 MG, QD) (120 MG , QD)
     Dates: start: 20080507, end: 20080523
  5. CIPROFLOXACIN [Suspect]
     Active Substance: CIPROFLOXACIN
     Indication: Pyrexia
     Dosage: 800 MILLIGRAM, QD (400 MG, BID)
     Dates: start: 20080430, end: 20080503
  6. CIPROFLOXACIN [Suspect]
     Active Substance: CIPROFLOXACIN
     Dosage: 800 MILLIGRAM, QD (400 MG, BID)
     Route: 065
     Dates: start: 20080430, end: 20080503
  7. CIPROFLOXACIN [Suspect]
     Active Substance: CIPROFLOXACIN
     Dosage: 800 MILLIGRAM, QD (400 MG, BID)
     Route: 065
     Dates: start: 20080430, end: 20080503
  8. CIPROFLOXACIN [Suspect]
     Active Substance: CIPROFLOXACIN
     Dosage: 800 MILLIGRAM, QD (400 MG, BID)
     Dates: start: 20080430, end: 20080503
  9. FLUCONAZOLE [Suspect]
     Active Substance: FLUCONAZOLE
     Indication: Pyrexia
     Dosage: 200 MILLIGRAM, QD
     Dates: start: 20080429, end: 20080519
  10. FLUCONAZOLE [Suspect]
     Active Substance: FLUCONAZOLE
     Dosage: 200 MILLIGRAM, QD
     Route: 065
     Dates: start: 20080429, end: 20080519
  11. FLUCONAZOLE [Suspect]
     Active Substance: FLUCONAZOLE
     Dosage: 200 MILLIGRAM, QD
     Route: 065
     Dates: start: 20080429, end: 20080519
  12. FLUCONAZOLE [Suspect]
     Active Substance: FLUCONAZOLE
     Dosage: 200 MILLIGRAM, QD
     Dates: start: 20080429, end: 20080519
  13. PANTOPRAZOLE SODIUM [Suspect]
     Active Substance: PANTOPRAZOLE SODIUM
     Indication: Abdominal pain
     Dosage: 40 MILLIGRAM, QD
     Dates: start: 20080428, end: 20080507
  14. PANTOPRAZOLE SODIUM [Suspect]
     Active Substance: PANTOPRAZOLE SODIUM
     Dosage: 40 MILLIGRAM, QD
     Dates: start: 20080428, end: 20080507
  15. PANTOPRAZOLE SODIUM [Suspect]
     Active Substance: PANTOPRAZOLE SODIUM
     Dosage: 40 MILLIGRAM, QD
     Route: 048
     Dates: start: 20080428, end: 20080507
  16. PANTOPRAZOLE SODIUM [Suspect]
     Active Substance: PANTOPRAZOLE SODIUM
     Dosage: 40 MILLIGRAM, QD
     Route: 048
     Dates: start: 20080428, end: 20080507
  17. PANTOPRAZOLE SODIUM [Suspect]
     Active Substance: PANTOPRAZOLE SODIUM
     Dosage: 40 MILLIGRAM, QD
     Dates: start: 20080527, end: 20080530
  18. PANTOPRAZOLE SODIUM [Suspect]
     Active Substance: PANTOPRAZOLE SODIUM
     Dosage: 40 MILLIGRAM, QD
     Dates: start: 20080527, end: 20080530
  19. PANTOPRAZOLE SODIUM [Suspect]
     Active Substance: PANTOPRAZOLE SODIUM
     Dosage: 40 MILLIGRAM, QD
     Route: 048
     Dates: start: 20080527, end: 20080530
  20. PANTOPRAZOLE SODIUM [Suspect]
     Active Substance: PANTOPRAZOLE SODIUM
     Dosage: 40 MILLIGRAM, QD
     Route: 048
     Dates: start: 20080527, end: 20080530
  21. MEROPENEM [Suspect]
     Active Substance: MEROPENEM
     Indication: Pyrexia
     Dosage: 1000 MILLIGRAM, TID (3000 MG, QD)
     Dates: start: 20080511, end: 20080516
  22. MEROPENEM [Suspect]
     Active Substance: MEROPENEM
     Dosage: 1000 MILLIGRAM, TID (3000 MG, QD)
     Route: 042
     Dates: start: 20080511, end: 20080516
  23. MEROPENEM [Suspect]
     Active Substance: MEROPENEM
     Dosage: 1000 MILLIGRAM, TID (3000 MG, QD)
     Route: 042
     Dates: start: 20080511, end: 20080516
  24. MEROPENEM [Suspect]
     Active Substance: MEROPENEM
     Dosage: 1000 MILLIGRAM, TID (3000 MG, QD)
     Dates: start: 20080511, end: 20080516
  25. PANTOPRAZOLE [Suspect]
     Active Substance: PANTOPRAZOLE
     Indication: Abdominal pain
     Dosage: 40 MILLIGRAM, QD
     Dates: start: 20080428, end: 20080530
  26. PANTOPRAZOLE [Suspect]
     Active Substance: PANTOPRAZOLE
     Dosage: 40 MILLIGRAM, QD
     Route: 048
     Dates: start: 20080428, end: 20080530
  27. PANTOPRAZOLE [Suspect]
     Active Substance: PANTOPRAZOLE
     Dosage: 40 MILLIGRAM, QD
     Route: 048
     Dates: start: 20080428, end: 20080530
  28. PANTOPRAZOLE [Suspect]
     Active Substance: PANTOPRAZOLE
     Dosage: 40 MILLIGRAM, QD
     Dates: start: 20080428, end: 20080530
  29. VITAMIN B [Concomitant]
     Active Substance: VITAMIN B
     Indication: Hypovitaminosis
     Dosage: 3 DOSAGE FORM, QD
  30. VITAMIN B [Concomitant]
     Active Substance: VITAMIN B
     Dosage: 3 DOSAGE FORM, QD
     Route: 065
  31. VITAMIN B [Concomitant]
     Active Substance: VITAMIN B
     Dosage: 3 DOSAGE FORM, QD
     Route: 065
  32. VITAMIN B [Concomitant]
     Active Substance: VITAMIN B
     Dosage: 3 DOSAGE FORM, QD
  33. THIAMINE [Concomitant]
     Active Substance: THIAMINE
     Indication: Hypovitaminosis
     Dosage: 300 MILLIGRAM, QD
     Dates: start: 20080428
  34. THIAMINE [Concomitant]
     Active Substance: THIAMINE
     Dosage: 300 MILLIGRAM, QD
     Route: 048
     Dates: start: 20080428
  35. THIAMINE [Concomitant]
     Active Substance: THIAMINE
     Dosage: 300 MILLIGRAM, QD
     Route: 048
     Dates: start: 20080428
  36. THIAMINE [Concomitant]
     Active Substance: THIAMINE
     Dosage: 300 MILLIGRAM, QD
     Dates: start: 20080428
  37. ZINACEF [Concomitant]
     Active Substance: CEFUROXIME SODIUM
     Indication: Pyrexia
     Dosage: 750 MILLIGRAM, TID (2250 MG, QD)
     Dates: start: 20080430, end: 20080510
  38. ZINACEF [Concomitant]
     Active Substance: CEFUROXIME SODIUM
     Dosage: 750 MILLIGRAM, TID (2250 MG, QD)
     Dates: start: 20080430, end: 20080510
  39. ZINACEF [Concomitant]
     Active Substance: CEFUROXIME SODIUM
     Dosage: 750 MILLIGRAM, TID (2250 MG, QD)
     Route: 030
     Dates: start: 20080430, end: 20080510
  40. ZINACEF [Concomitant]
     Active Substance: CEFUROXIME SODIUM
     Dosage: 750 MILLIGRAM, TID (2250 MG, QD)
     Route: 030
     Dates: start: 20080430, end: 20080510
  41. ZINACEF [Concomitant]
     Active Substance: CEFUROXIME SODIUM
     Dosage: 1500 MILLIGRAM, TID (4500 MG,QD)
     Dates: start: 20080428, end: 20080430
  42. ZINACEF [Concomitant]
     Active Substance: CEFUROXIME SODIUM
     Dosage: 1500 MILLIGRAM, TID (4500 MG,QD)
     Dates: start: 20080428, end: 20080430
  43. ZINACEF [Concomitant]
     Active Substance: CEFUROXIME SODIUM
     Dosage: 1500 MILLIGRAM, TID (4500 MG,QD)
     Route: 030
     Dates: start: 20080428, end: 20080430
  44. ZINACEF [Concomitant]
     Active Substance: CEFUROXIME SODIUM
     Dosage: 1500 MILLIGRAM, TID (4500 MG,QD)
     Route: 030
     Dates: start: 20080428, end: 20080430
  45. B-combin [Concomitant]
     Indication: Hypovitaminosis
     Dosage: 3 DOSAGE FORM, QD
     Dates: start: 20080508
  46. B-combin [Concomitant]
     Dosage: 3 DOSAGE FORM, QD
     Route: 065
     Dates: start: 20080508
  47. B-combin [Concomitant]
     Dosage: 3 DOSAGE FORM, QD
     Route: 065
     Dates: start: 20080508
  48. B-combin [Concomitant]
     Dosage: 3 DOSAGE FORM, QD
     Dates: start: 20080508
  49. CEFUROXIME [Concomitant]
     Active Substance: CEFUROXIME
     Indication: Pyrexia
     Dosage: 2250 MILLIGRAM, QD
     Dates: start: 20080430, end: 20080510
  50. CEFUROXIME [Concomitant]
     Active Substance: CEFUROXIME
     Dosage: 2250 MILLIGRAM, QD
     Dates: start: 20080430, end: 20080510
  51. CEFUROXIME [Concomitant]
     Active Substance: CEFUROXIME
     Dosage: 2250 MILLIGRAM, QD
     Route: 065
     Dates: start: 20080430, end: 20080510
  52. CEFUROXIME [Concomitant]
     Active Substance: CEFUROXIME
     Dosage: 2250 MILLIGRAM, QD
     Route: 065
     Dates: start: 20080430, end: 20080510
  53. CEFUROXIME [Concomitant]
     Active Substance: CEFUROXIME
     Dosage: 4500 MILLIGRAM, QD
     Dates: start: 20080428, end: 20080430
  54. CEFUROXIME [Concomitant]
     Active Substance: CEFUROXIME
     Dosage: 4500 MILLIGRAM, QD
     Dates: start: 20080428, end: 20080430
  55. CEFUROXIME [Concomitant]
     Active Substance: CEFUROXIME
     Dosage: 4500 MILLIGRAM, QD
     Route: 065
     Dates: start: 20080428, end: 20080430
  56. CEFUROXIME [Concomitant]
     Active Substance: CEFUROXIME
     Dosage: 4500 MILLIGRAM, QD
     Route: 065
     Dates: start: 20080428, end: 20080430

REACTIONS (8)
  - Toxic epidermal necrolysis [Recovered/Resolved]
  - Rash [Recovered/Resolved]
  - Rash maculo-papular [Unknown]
  - Tremor [Recovered/Resolved]
  - Paraesthesia [Recovered/Resolved]
  - Pain in extremity [Recovered/Resolved]
  - Oedema peripheral [Unknown]
  - Asthenia [Unknown]

NARRATIVE: CASE EVENT DATE: 20080525
